FAERS Safety Report 15128854 (Version 1)
Quarter: 2018Q3

REPORT INFORMATION
  Report Type: Spontaneous
  Country: CN (occurrence: CN)
  Receive Date: 20180711
  Receipt Date: 20180711
  Transmission Date: 20181010
  Serious: Yes (Other)
  Sender: FDA-Public Use
  Company Number: CN-BAXTER-2018BAX018811

PATIENT
  Age: 1 Year
  Sex: Male
  Weight: 10.6 kg

DRUGS (4)
  1. 0.9% SODIUM CHLORIDE INJECTION [Suspect]
     Active Substance: SODIUM CHLORIDE
     Indication: MEDICATION DILUTION
     Route: 041
     Dates: start: 20180410
  2. LIFUXIN (CEFUROXIME SODIUM) [Suspect]
     Active Substance: CEFUROXIME SODIUM
     Indication: TONSILLITIS
     Route: 041
     Dates: start: 20180410
  3. LIFUXIN (CEFUROXIME SODIUM) [Suspect]
     Active Substance: CEFUROXIME SODIUM
     Route: 041
     Dates: start: 20180411, end: 20180411
  4. 0.9% SODIUM CHLORIDE INJECTION [Suspect]
     Active Substance: SODIUM CHLORIDE
     Route: 041
     Dates: start: 20180411, end: 20180411

REACTIONS (3)
  - Face oedema [Recovered/Resolved]
  - Rash [Recovering/Resolving]
  - Rash [Recovering/Resolving]

NARRATIVE: CASE EVENT DATE: 20180410
